FAERS Safety Report 15599431 (Version 1)
Quarter: 2018Q4

REPORT INFORMATION
  Report Type: Spontaneous
  Country: JP (occurrence: JP)
  Receive Date: 20181108
  Receipt Date: 20181108
  Transmission Date: 20190205
  Serious: Yes (Death)
  Sender: FDA-Public Use
  Company Number: JP-PFIZER INC-2018449872

PATIENT
  Age: 80 Year
  Sex: Male

DRUGS (2)
  1. VFEND [Suspect]
     Active Substance: VORICONAZOLE
     Dosage: 400 MG, DAILY
     Dates: start: 20180808, end: 20180819
  2. FUNGUARD [Suspect]
     Active Substance: MICAFUNGIN SODIUM
     Dosage: UNK
     Dates: start: 20180820

REACTIONS (1)
  - Drug effect incomplete [Fatal]
